FAERS Safety Report 4328420-4 (Version None)
Quarter: 2004Q1

REPORT INFORMATION
  Report Type: 
  Country: None (occurrence: None)
  Receive Date: 20040324
  Receipt Date: 20030307
  Transmission Date: 20041129
  Serious: Yes (Other)
  Sender: FDA-Public Use
  Company Number: K200300383

PATIENT
  Age: 40 Year
  Sex: Female
  Weight: 95.7 kg

DRUGS (2)
  1. ALTACE [Suspect]
     Indication: PROPHYLAXIS
     Dosage: 5 MG, QD, ORAL
     Route: 048
     Dates: start: 20020101, end: 20030306
  2. HUMULIN (INSULIN HUMAN, INSULIN ISOPHANE, HUMAN BIOSYNTHETIC) [Concomitant]

REACTIONS (3)
  - ANGIONEUROTIC OEDEMA [None]
  - OROPHARYNGEAL SWELLING [None]
  - TONGUE OEDEMA [None]
